FAERS Safety Report 6245556-1 (Version None)
Quarter: 2009Q2

REPORT INFORMATION
  Report Type: 
  Country: None (occurrence: None)
  Receive Date: 20090625
  Receipt Date: 20090617
  Transmission Date: 20091009
  Serious: Yes (Life-Threatening)
  Sender: FDA-Public Use
  Company Number: JP-PFIZER INC-2009229513

PATIENT

DRUGS (1)
  1. GABAPEN [Suspect]
     Indication: PAIN IN EXTREMITY
     Route: 048

REACTIONS (2)
  - CARDIO-RESPIRATORY ARREST [None]
  - DIZZINESS [None]
